FAERS Safety Report 10750890 (Version 1)
Quarter: 2015Q1

REPORT INFORMATION
  Report Type: Spontaneous
  Country: US (occurrence: None)
  Receive Date: 20150128
  Receipt Date: 20150128
  Transmission Date: 20150721
  Serious: Yes (Hospitalization, Other)
  Sender: FDA-Public Use
  Company Number: ADR-2010-9521

PATIENT
  Age: 3 Year
  Sex: Male

DRUGS (1)
  1. BACLOFEN INTRATHECAL [Suspect]
     Active Substance: BACLOFEN
     Indication: MUSCLE SPASTICITY

REACTIONS (6)
  - Pyrexia [None]
  - Back pain [None]
  - Cerebrospinal fluid leakage [None]
  - Bacterial test positive [None]
  - Inflammation [None]
  - Implant site extravasation [None]

NARRATIVE: CASE EVENT DATE: 20071126
